FAERS Safety Report 9850903 (Version 4)
Quarter: 2014Q4

REPORT INFORMATION
  Report Type: Report from Study
  Country: FR (occurrence: FR)
  Receive Date: 20140128
  Receipt Date: 20141117
  Transmission Date: 20150529
  Serious: Yes (Hospitalization)
  Sender: FDA-Public Use
  Company Number: FR-BAYER-2014-000617

PATIENT
  Age: 76 Year
  Sex: Male
  Weight: 67 kg

DRUGS (11)
  1. TAHOR [Concomitant]
     Active Substance: ATORVASTATIN CALCIUM
     Indication: DYSLIPIDAEMIA
     Dosage: DAILY DOSE 40 MG
     Route: 048
  2. REGORAFENIB [Suspect]
     Active Substance: REGORAFENIB
     Dosage: 3 DF, QD (3 PILLS/DAY)
     Dates: start: 20140116
  3. ALDACTONE [Concomitant]
     Active Substance: SPIRONOLACTONE
     Indication: HYPERTENSION
     Dosage: DAILY DOSE 25 MG
  4. EZETROL [Concomitant]
     Active Substance: EZETIMIBE
     Indication: DYSLIPIDAEMIA
     Dosage: DAILY DOSE 100 MG
     Route: 048
  5. ALLOPURINOL. [Concomitant]
     Active Substance: ALLOPURINOL
     Indication: GOUT
     Dosage: DAILY DOSE 100 MG
     Route: 048
  6. SOTALEX [Concomitant]
     Active Substance: SOTALOL
     Indication: MYOCARDIAL ISCHAEMIA
     Dosage: DAILY DOSE 160 MG
     Route: 048
  7. REGORAFENIB [Suspect]
     Active Substance: REGORAFENIB
     Dosage: DAILY DOSE 160 MG
     Route: 048
     Dates: start: 20131120, end: 20131211
  8. REGORAFENIB [Suspect]
     Active Substance: REGORAFENIB
     Dosage: DAILY DOSE 160 MG
     Dates: start: 20131219, end: 20131226
  9. FUROSEMID [Concomitant]
     Active Substance: FUROSEMIDE
     Indication: HYPERTENSION
     Dosage: DAILY DOSE 20 MG
     Route: 048
  10. TRIATEC [Concomitant]
     Active Substance: RAMIPRIL
     Indication: HYPERTENSION
     Dosage: DAILY DOSE 2.5 MG
  11. KARDEGIC [Concomitant]
     Active Substance: ASPIRIN LYSINE
     Indication: THROMBOSIS PROPHYLAXIS
     Dosage: DAILY DOSE 160 MG
     Route: 048

REACTIONS (2)
  - Dyspnoea [Recovering/Resolving]
  - Dyspnoea [Not Recovered/Not Resolved]

NARRATIVE: CASE EVENT DATE: 20131224
